FAERS Safety Report 9175680 (Version 1)
Quarter: 2012Q4

REPORT INFORMATION
  Report Type: 
  Country: US (occurrence: US)
  Receive Date: 20120915
  Receipt Date: 20120915
  Transmission Date: 20130627
  Serious: No
  Sender: FDA-Public Use
  Company Number: US-009507513-1209USA005299

PATIENT

DRUGS (2)
  1. NUVARING [Suspect]
     Dosage: 0.12/0.015/24 mg
     Route: 067
     Dates: start: 20120908
  2. NUVARING [Suspect]
     Dosage: UNK
     Dates: start: 20120909

REACTIONS (1)
  - Incorrect storage of drug [Unknown]
